FAERS Safety Report 7403483-8 (Version None)
Quarter: 2011Q2

REPORT INFORMATION
  Report Type: 
  Country: None (occurrence: None)
  Receive Date: 20110408
  Receipt Date: 20110407
  Transmission Date: 20111010
  Serious: Yes (Hospitalization)
  Sender: FDA-Public Use
  Company Number: GB-AMGEN-UK338771

PATIENT
  Age: 38 Year
  Sex: Female
  Weight: 71.4 kg

DRUGS (2)
  1. IRINOTECAN [Suspect]
     Indication: COLORECTAL CANCER
     Dosage: 610 MG, UNK
     Route: 042
     Dates: start: 20090309
  2. PANITUMUMAB [Suspect]
     Indication: COLORECTAL CANCER
     Dosage: 650 MG, UNK
     Route: 042
     Dates: start: 20090309

REACTIONS (7)
  - VAGINAL HAEMORRHAGE [None]
  - PLATELET COUNT DECREASED [None]
  - NEUTROPENIC SEPSIS [None]
  - NAUSEA [None]
  - REFUSAL OF TREATMENT BY PATIENT [None]
  - WHITE BLOOD CELL COUNT DECREASED [None]
  - DIARRHOEA [None]
